FAERS Safety Report 13058800 (Version 6)
Quarter: 2017Q1

REPORT INFORMATION
  Report Type: Report from Study
  Country: ES (occurrence: ES)
  Receive Date: 20161223
  Receipt Date: 20170202
  Transmission Date: 20170428
  Serious: Yes (Death, Hospitalization)
  Sender: FDA-Public Use
  Company Number: ES-ROCHE-1871607

PATIENT
  Age: 74 Year
  Sex: Male
  Weight: 74 kg

DRUGS (9)
  1. ONDANSETRON [Concomitant]
     Active Substance: ONDANSETRON
     Indication: PREMEDICATION
     Route: 065
     Dates: start: 20161125, end: 20161125
  2. RANITIDINE. [Concomitant]
     Active Substance: RANITIDINE
     Route: 065
     Dates: start: 20161216, end: 20161216
  3. DEXCLORFENIRAMINA [Concomitant]
     Indication: PREMEDICATION
     Route: 065
     Dates: start: 20161125, end: 20161125
  4. DEXCLORFENIRAMINA [Concomitant]
     Route: 065
     Dates: start: 20161216, end: 20161216
  5. CARBOPLATIN. [Suspect]
     Active Substance: CARBOPLATIN
     Indication: NON-SMALL CELL LUNG CANCER STAGE IV
     Dosage: LAST DOSE PRIOR TO SAE: 640 MG AND WAS ADMINISTERED ON 16/DEC/2016
     Route: 042
     Dates: start: 20161125
  6. PACLITAXEL. [Suspect]
     Active Substance: PACLITAXEL
     Indication: NON-SMALL CELL LUNG CANCER STAGE IV
     Dosage: LAST DOSE PRIOR TO SAE WAS 390 MG ADMINISTERED ON 16/DEC/2016
     Route: 042
     Dates: start: 20161125
  7. RANITIDINE. [Concomitant]
     Active Substance: RANITIDINE
     Indication: PREMEDICATION
     Route: 065
     Dates: start: 20161125, end: 20161125
  8. ONDANSETRON [Concomitant]
     Active Substance: ONDANSETRON
     Route: 065
     Dates: start: 20161216, end: 20161216
  9. ATEZOLIZUMAB [Suspect]
     Active Substance: ATEZOLIZUMAB
     Indication: NON-SMALL CELL LUNG CANCER STAGE IV
     Dosage: MOPST RECENT DOSE PRIOR TO SAE: 16/DEC/2016, LAST DOSE ADMINISTERED: 1200 MG
     Route: 042
     Dates: start: 20161125

REACTIONS (3)
  - Vomiting [Fatal]
  - Abdominal pain [Not Recovered/Not Resolved]
  - Neutropenia [Not Recovered/Not Resolved]

NARRATIVE: CASE EVENT DATE: 20161219
